FAERS Safety Report 5422201-6 (Version None)
Quarter: 2007Q3

REPORT INFORMATION
  Report Type: 
  Country: None (occurrence: None)
  Receive Date: 20070821
  Receipt Date: 20070821
  Transmission Date: 20080115
  Serious: Yes (Other)
  Sender: FDA-Public Use
  Company Number: None

PATIENT
  Age: 64 Year
  Sex: Male
  Weight: 106.5953 kg

DRUGS (1)
  1. ZETIA [Suspect]
     Indication: BLOOD CHOLESTEROL INCREASED
     Dosage: 1 10 MG TABLET ONCE DAILY PO
     Route: 048
     Dates: start: 20070628, end: 20070818

REACTIONS (7)
  - ARTHRALGIA [None]
  - BLOOD BILIRUBIN INCREASED [None]
  - GALLBLADDER DISORDER [None]
  - GASTRIC DISORDER [None]
  - MALAISE [None]
  - MUSCLE FATIGUE [None]
  - NAUSEA [None]
